FAERS Safety Report 4331264-0 (Version None)
Quarter: 2004Q1

REPORT INFORMATION
  Report Type: 
  Country: None (occurrence: None)
  Receive Date: 20040331
  Receipt Date: 20040315
  Transmission Date: 20041129
  Serious: Yes (Other)
  Sender: FDA-Public Use
  Company Number: 200403576

PATIENT
  Age: 27 Year
  Sex: Male

DRUGS (1)
  1. TYLENOL A GELCAP (ACETAMINOPHEN) [Suspect]
     Indication: HEADACHE
     Dosage: 300 MG, TID, PO
     Route: 048
     Dates: start: 20040312

REACTIONS (5)
  - EYE REDNESS [None]
  - FLUSHING [None]
  - OCULAR HYPERAEMIA [None]
  - PRURITUS [None]
  - RASH [None]
